FAERS Safety Report 20282202 (Version 1)
Quarter: 2022Q1

REPORT INFORMATION
  Report Type: Spontaneous
  Country: US (occurrence: None)
  Receive Date: 20220101
  Receipt Date: 20220101
  Transmission Date: 20220423
  Serious: No
  Sender: FDA-Public Use
  Company Number: None

PATIENT
  Age: 41 Year
  Sex: Male
  Weight: 86.64 kg

DRUGS (1)
  1. NALTREXONE [Suspect]
     Active Substance: NALTREXONE
     Indication: Alcohol use disorder
     Route: 030
     Dates: start: 20181220

REACTIONS (5)
  - Drug delivery system malfunction [None]
  - Syringe issue [None]
  - Needle issue [None]
  - Incorrect dose administered [None]
  - Product quality issue [None]

NARRATIVE: CASE EVENT DATE: 20211215
